FAERS Safety Report 21740989 (Version 1)
Quarter: 2022Q4

REPORT INFORMATION
  Report Type: Spontaneous
  Country: US (occurrence: None)
  Receive Date: 20221215
  Receipt Date: 20221215
  Transmission Date: 20230112
  Serious: Yes (Hospitalization)
  Sender: FDA-Public Use
  Company Number: None

PATIENT
  Sex: Female

DRUGS (3)
  1. TACROLIMUS [Suspect]
     Active Substance: TACROLIMUS
     Indication: Renal transplant
     Dosage: TACROLIMUS 1 MG?TAKE 2 CAPSULES BY MOUTH EVERY MORNING AND 1 CAPSULE BY MOUTH EVERY EVENING? ?
     Route: 048
     Dates: start: 20200204
  2. TACROLIMUS [Suspect]
     Active Substance: TACROLIMUS
     Dosage: TACROLIMUS 0.5 MG TAKE 1 CAPSULE BY MOUTH EVERY EVENING.
     Route: 048
  3. MYCOPHENOLIC [Concomitant]

REACTIONS (2)
  - Hospitalisation [None]
  - Intentional dose omission [None]
